FAERS Safety Report 8342247-8 (Version None)
Quarter: 2012Q2

REPORT INFORMATION
  Report Type: 
  Country: None (occurrence: None)
  Receive Date: 20120507
  Receipt Date: 20120501
  Transmission Date: 20120825
  Serious: Yes (Other)
  Sender: FDA-Public Use
  Company Number: US-AMGEN-USASP2011064384

PATIENT
  Age: 60 Year
  Sex: Female

DRUGS (1)
  1. ENBREL [Suspect]
     Indication: RHEUMATOID ARTHRITIS
     Dosage: 50 MG, QWK
     Dates: start: 20100415

REACTIONS (6)
  - PARAESTHESIA [None]
  - DIZZINESS [None]
  - TREMOR [None]
  - DYSKINESIA [None]
  - VISUAL ACUITY REDUCED [None]
  - PANIC ATTACK [None]
